FAERS Safety Report 11675807 (Version 1)
Quarter: 2015Q4

REPORT INFORMATION
  Report Type: Spontaneous
  Country: US (occurrence: US)
  Receive Date: 20151028
  Receipt Date: 20151028
  Transmission Date: 20160304
  Serious: Yes (Other)
  Sender: FDA-Public Use
  Company Number: US-SA-2015SA167348

PATIENT
  Age: 73 Year
  Sex: Female

DRUGS (4)
  1. HUMALOG [Concomitant]
     Active Substance: INSULIN LISPRO
     Dosage: DOSE: SLIDING SCALE
  2. SOLOSTAR [Concomitant]
     Active Substance: DEVICE
     Indication: TYPE 2 DIABETES MELLITUS
     Dates: end: 20151017
  3. LANTUS SOLOSTAR [Suspect]
     Active Substance: INSULIN GLARGINE
     Indication: TYPE 2 DIABETES MELLITUS
     Dosage: DOSE: 30 U AM, 10 U PM
     Route: 065
     Dates: end: 20151017
  4. HUMALOG [Concomitant]
     Active Substance: INSULIN LISPRO
     Dosage: DOSE: SLIDING SCALE DOSE:20 UNIT(S)

REACTIONS (5)
  - Drug administration error [Unknown]
  - Feeling abnormal [Unknown]
  - Blood glucose decreased [Recovered/Resolved]
  - Blindness [Unknown]
  - Bone cancer [Unknown]
